FAERS Safety Report 5035890-5 (Version None)
Quarter: 2006Q2

REPORT INFORMATION
  Report Type: 
  Country: None (occurrence: None)
  Receive Date: 20060526
  Receipt Date: 20060329
  Transmission Date: 20061013
  Serious: No
  Sender: FDA-Public Use
  Company Number: 223582

PATIENT
  Age: 62 Year
  Sex: Female
  Weight: 83.9 kg

DRUGS (12)
  1. RAPTIVA [Suspect]
     Indication: DRUG USE FOR UNKNOWN INDICATION
     Dosage: 84 MG, 1/WEEK, SUBCUTANEOUS
     Route: 058
     Dates: start: 20040304, end: 20060126
  2. ALTACE [Concomitant]
  3. ASPIRIN [Concomitant]
  4. TENORMIN [Concomitant]
  5. HCTZ (HYDROCHLOROTHIAZIDE) [Concomitant]
  6. HUMULIN N (NPH HUMAN INSULIN ISOPHANE SUSPENSION) [Concomitant]
  7. GLUCOPHAGE [Concomitant]
  8. LIPITOR [Concomitant]
  9. WELCHOL [Concomitant]
  10. ULTRACET (ACETAMINOPHEN, TRAMADOL HYDROCHLORIDE) [Concomitant]
  11. CALCIUM (CALCIUM NOS) [Concomitant]
  12. NOVOLOG (INSULIN HUMAN) [Concomitant]

REACTIONS (2)
  - LYMPHOCYTOSIS [None]
  - WHITE BLOOD CELL COUNT INCREASED [None]
